FAERS Safety Report 4552709-7 (Version None)
Quarter: 2005Q1

REPORT INFORMATION
  Report Type: 
  Country: None (occurrence: None)
  Receive Date: 20050114
  Receipt Date: 20050110
  Transmission Date: 20050727
  Serious: Yes (Hospitalization)
  Sender: FDA-Public Use
  Company Number: US-BRISTOL-MYERS SQUIBB COMPANY-12819538

PATIENT
  Age: 58 Year
  Sex: Female
  Weight: 104 kg

DRUGS (7)
  1. TAXOL [Suspect]
     Indication: BREAST CANCER
     Dates: start: 20041019
  2. CARBOPLATIN [Suspect]
     Indication: BREAST CANCER
     Dosage: DOSE: AUC 6 IN WEEKS 1, 5, 9, 13
     Dates: start: 20041019
  3. ADVAIR DISKUS 100/50 [Concomitant]
  4. ALBUTEROL [Concomitant]
  5. PROZAC [Concomitant]
  6. ZOMIG [Concomitant]
  7. FIORICET [Concomitant]

REACTIONS (1)
  - CHEST DISCOMFORT [None]
